FAERS Safety Report 10904473 (Version 1)
Quarter: 2015Q1

REPORT INFORMATION
  Report Type: Spontaneous
  Country: US (occurrence: US)
  Receive Date: 20150311
  Receipt Date: 20150311
  Transmission Date: 20150721
  Serious: Yes (Other)
  Sender: FDA-Public Use
  Company Number: US-SHIRE-US201501835

PATIENT
  Age: 13 Year
  Sex: Male

DRUGS (1)
  1. ELAPRASE [Suspect]
     Active Substance: IDURSULFASE
     Indication: MUCOPOLYSACCHARIDOSIS
     Dosage: 6 MG, 1X/WEEK
     Route: 041
     Dates: start: 20140430

REACTIONS (2)
  - Device dislocation [Unknown]
  - Poor venous access [Unknown]

NARRATIVE: CASE EVENT DATE: 20150226
